FAERS Safety Report 13160306 (Version 2)
Quarter: 2017Q2

REPORT INFORMATION
  Report Type: Report from Study
  Country: US (occurrence: US)
  Receive Date: 20170127
  Receipt Date: 20170504
  Transmission Date: 20170830
  Serious: Yes (Hospitalization, Other)
  Sender: FDA-Public Use
  Company Number: US-BAXTER-2016BAX025015

PATIENT
  Age: 54 Year
  Sex: Male

DRUGS (40)
  1. ALLOPURINOL. [Concomitant]
     Active Substance: ALLOPURINOL
     Indication: PROPHYLAXIS
     Route: 065
     Dates: start: 20160111
  2. PANTOPRAZOLE [Concomitant]
     Active Substance: PANTOPRAZOLE
     Indication: ANTACID THERAPY
     Route: 065
     Dates: start: 20160202
  3. CLOTRIMAZOLE TROCHE [Concomitant]
     Active Substance: CLOTRIMAZOLE
     Indication: PROPHYLAXIS
     Route: 048
  4. CYCLOPHOSPHAMIDE FOR INJECTION, USP [Suspect]
     Active Substance: CYCLOPHOSPHAMIDE
     Dosage: MOST RECENT DOSE PRIOR TO THE EVENT NEUTROPENIC FEVER GRADE 3, 4TH COURSE OF CHEMOTHERAPY
     Route: 042
     Dates: start: 20160315
  5. CYCLOPHOSPHAMIDE FOR INJECTION, USP [Suspect]
     Active Substance: CYCLOPHOSPHAMIDE
     Route: 042
  6. DECADRON [Concomitant]
     Active Substance: DEXAMETHASONE
     Indication: PREMEDICATION
     Route: 065
     Dates: start: 20160111, end: 20160517
  7. VENETOCLAX [Suspect]
     Active Substance: VENETOCLAX
     Route: 048
  8. PREDNISONE. [Suspect]
     Active Substance: PREDNISONE
     Indication: DIFFUSE LARGE B-CELL LYMPHOMA
     Dosage: DAY 1-DAY 5
     Route: 048
     Dates: start: 20160111
  9. PREDNISONE. [Suspect]
     Active Substance: PREDNISONE
     Dosage: DAY 1-DAY 5 (MOST RECENT DOSE PRIOR TO THE EVENT NEUTROPENIS FEVER)
     Route: 048
     Dates: start: 20160319
  10. ZOFRAN [Concomitant]
     Active Substance: ONDANSETRON HYDROCHLORIDE
     Indication: PROPHYLAXIS OF NAUSEA AND VOMITING
     Route: 065
     Dates: start: 20160111
  11. VENETOCLAX [Suspect]
     Active Substance: VENETOCLAX
     Dosage: MOST RECENT DOSE PRIOR TO THE EVENT NEUTROPENIC FEVER GRADE 3
     Route: 048
     Dates: start: 20160320
  12. DOXORUBICIN [Suspect]
     Active Substance: DOXORUBICIN
     Indication: DIFFUSE LARGE B-CELL LYMPHOMA
     Route: 042
     Dates: start: 20160111
  13. DIPHENHYDRAMINE. [Concomitant]
     Active Substance: DIPHENHYDRAMINE
     Indication: PREMEDICATION
     Route: 065
     Dates: start: 20160111, end: 20160517
  14. VENETOCLAX [Suspect]
     Active Substance: VENETOCLAX
     Route: 048
     Dates: start: 20160324
  15. RITUXIMAB [Suspect]
     Active Substance: RITUXIMAB
     Dosage: MOST RECENT DOSE PRIOR TO THE EVENT NEUTROPENIC FEVER GRADE 3, 4TH COURSE OF CHEMOTHERAPY
     Route: 042
     Dates: start: 20160315
  16. RITUXIMAB [Suspect]
     Active Substance: RITUXIMAB
     Route: 042
  17. VINCRISTINE [Suspect]
     Active Substance: VINCRISTINE
     Dosage: MOST RECENT DOSE PRIOR TO THE EVENT NEUTROPENIC FEVER GRADE 3, 4TH COURSE OF CHEMOTHERAPY
     Route: 042
     Dates: start: 20160315
  18. SANCUSO [Concomitant]
     Active Substance: GRANISETRON
     Indication: NAUSEA
     Dosage: PATCH
     Route: 065
     Dates: start: 20160222
  19. VANCOMYCIN INJECTION, USP [Suspect]
     Active Substance: VANCOMYCIN
     Indication: FEBRILE NEUTROPENIA
     Route: 065
     Dates: start: 20160324, end: 20160327
  20. RITUXIMAB [Suspect]
     Active Substance: RITUXIMAB
     Indication: DIFFUSE LARGE B-CELL LYMPHOMA
     Route: 042
     Dates: start: 20160111
  21. VINCRISTINE [Suspect]
     Active Substance: VINCRISTINE
     Indication: DIFFUSE LARGE B-CELL LYMPHOMA
     Route: 042
     Dates: start: 20160111
  22. PREDNISONE. [Suspect]
     Active Substance: PREDNISONE
     Route: 048
  23. ACETAMINOPHEN. [Concomitant]
     Active Substance: ACETAMINOPHEN
     Indication: PREMEDICATION
     Route: 065
     Dates: start: 20160111, end: 20160517
  24. DOCUSATE SODIUM. [Concomitant]
     Active Substance: DOCUSATE SODIUM
     Indication: CONSTIPATION
     Route: 065
     Dates: start: 20160224
  25. NEOMYCIN/POLYMYXIN/DEXAMETHASONE OPHTHALMIC [Concomitant]
     Indication: EYE IRRITATION
     Route: 065
     Dates: start: 20160122
  26. CLARITIN [Concomitant]
     Active Substance: LORATADINE
     Indication: PRODUCT USED FOR UNKNOWN INDICATION
     Route: 065
     Dates: start: 20160111
  27. COLASE [Concomitant]
     Indication: CONSTIPATION PROPHYLAXIS
     Route: 065
     Dates: start: 201603, end: 201603
  28. ASPIRIN. [Concomitant]
     Active Substance: ASPIRIN
     Indication: PRODUCT USED FOR UNKNOWN INDICATION
     Route: 065
  29. CEFEPIME [Suspect]
     Active Substance: CEFEPIME HYDROCHLORIDE
     Indication: FEBRILE NEUTROPENIA
     Route: 065
     Dates: start: 20160321, end: 20160327
  30. CYCLOPHOSPHAMIDE FOR INJECTION, USP [Suspect]
     Active Substance: CYCLOPHOSPHAMIDE
     Indication: DIFFUSE LARGE B-CELL LYMPHOMA
     Route: 042
     Dates: start: 20160111
  31. VINCRISTINE [Suspect]
     Active Substance: VINCRISTINE
     Route: 042
  32. ALOXI [Concomitant]
     Active Substance: PALONOSETRON HYDROCHLORIDE
     Indication: PREMEDICATION
     Route: 065
     Dates: start: 20160111, end: 20160517
  33. COMPAZINE [Concomitant]
     Active Substance: PROCHLORPERAZINE MALEATE
     Indication: NAUSEA
     Route: 065
     Dates: start: 20160114
  34. KETOCONAZOLE. [Concomitant]
     Active Substance: KETOCONAZOLE
     Indication: RASH
     Route: 065
     Dates: start: 20160223
  35. VENETOCLAX [Suspect]
     Active Substance: VENETOCLAX
     Indication: DIFFUSE LARGE B-CELL LYMPHOMA
     Route: 048
     Dates: start: 20160114
  36. DOXORUBICIN [Suspect]
     Active Substance: DOXORUBICIN
     Dosage: MOST RECENT DOSE PRIOR TO THE EVENT NEUTROPENIC FEVER GRADE 3, 4TH COURSE OF CHEMOTHERAPY
     Route: 042
     Dates: start: 20160315
  37. DOXORUBICIN [Suspect]
     Active Substance: DOXORUBICIN
     Route: 042
  38. LEVAQUIN [Concomitant]
     Active Substance: LEVOFLOXACIN
     Indication: INFECTION PROPHYLAXIS
     Route: 065
     Dates: start: 20160111
  39. NEULASTA [Concomitant]
     Active Substance: PEGFILGRASTIM
     Indication: INFECTION PROPHYLAXIS
     Route: 065
     Dates: start: 20160112
  40. VALTREX [Concomitant]
     Active Substance: VALACYCLOVIR HYDROCHLORIDE
     Indication: PROPHYLAXIS
     Route: 065
     Dates: end: 20160417

REACTIONS (3)
  - Febrile neutropenia [Recovered/Resolved]
  - Pneumocystis jirovecii pneumonia [Unknown]
  - Organising pneumonia [Recovered/Resolved]

NARRATIVE: CASE EVENT DATE: 20160320
